FAERS Safety Report 7201278-1 (Version None)
Quarter: 2010Q4

REPORT INFORMATION
  Report Type: 
  Country: None (occurrence: None)
  Receive Date: 20101229
  Receipt Date: 20101224
  Transmission Date: 20110411
  Serious: No
  Sender: FDA-Public Use
  Company Number: JP-JNJFOC-20101207074

PATIENT
  Age: 76 Year
  Sex: Male

DRUGS (3)
  1. DUROTEP MT [Suspect]
     Indication: PAIN
     Route: 062
  2. DUROTEP MT [Suspect]
     Route: 062
  3. DUROTEP MT [Suspect]
     Route: 062

REACTIONS (2)
  - DRUG DISPENSING ERROR [None]
  - NAUSEA [None]
